FAERS Safety Report 4467288-2 (Version None)
Quarter: 2004Q4

REPORT INFORMATION
  Report Type: 
  Country: None (occurrence: None)
  Receive Date: 20041006
  Receipt Date: 20040930
  Transmission Date: 20050328
  Serious: Yes (Hospitalization)
  Sender: FDA-Public Use
  Company Number: GBPFL-E-20040004

PATIENT
  Age: 50 Year
  Sex: Female

DRUGS (4)
  1. NAVELBINE [Suspect]
     Indication: BREAST CANCER
     Dosage: 50MG PER DAY
     Route: 042
     Dates: start: 20040813
  2. TRASTUZUMAB [Suspect]
     Indication: BREAST CANCER
  3. DOMPERIDONE [Concomitant]
     Dates: start: 20040813, end: 20040816
  4. LANSOPRAZOLE [Concomitant]
     Dates: start: 20040813

REACTIONS (3)
  - NEUTROPHIL COUNT DECREASED [None]
  - PHARYNGOLARYNGEAL PAIN [None]
  - PYREXIA [None]
